FAERS Safety Report 7106183-7 (Version None)
Quarter: 2010Q4

REPORT INFORMATION
  Report Type: 
  Country: None (occurrence: None)
  Receive Date: 20101116
  Receipt Date: 20080801
  Transmission Date: 20110411
  Serious: Yes (Other)
  Sender: FDA-Public Use
  Company Number: PHHY2008AU37248

PATIENT

DRUGS (1)
  1. TASIGNA [Suspect]

REACTIONS (1)
  - KNEE ARTHROPLASTY [None]
